FAERS Safety Report 23536748 (Version 1)
Quarter: 2024Q1

REPORT INFORMATION
  Report Type: Spontaneous
  Country: FR (occurrence: FR)
  Receive Date: 20240219
  Receipt Date: 20240219
  Transmission Date: 20240410
  Serious: Yes (Other)
  Sender: FDA-Public Use
  Company Number: FR-AFSSAPS-PP2024000091

PATIENT
  Age: 86 Year
  Sex: Female
  Weight: 72 kg

DRUGS (1)
  1. LANSOPRAZOLE [Suspect]
     Active Substance: LANSOPRAZOLE
     Indication: Gastric ulcer
     Dosage: 15 MILLIGRAM, ONCE A DAY
     Route: 048
     Dates: start: 20230907, end: 20231212

REACTIONS (1)
  - Colitis microscopic [Unknown]

NARRATIVE: CASE EVENT DATE: 20231212
